FAERS Safety Report 9116962 (Version 2)
Quarter: 2013Q3

REPORT INFORMATION
  Report Type: Spontaneous
  Country: US (occurrence: US)
  Receive Date: 20130225
  Receipt Date: 20130712
  Transmission Date: 20140515
  Serious: Yes (Hospitalization, Other)
  Sender: FDA-Public Use
  Company Number: US-BAYER-2013-022635

PATIENT
  Age: 18 Year
  Sex: Female
  Weight: 70.3 kg

DRUGS (3)
  1. YAZ [Suspect]
     Indication: ACNE
     Dosage: UNK
     Dates: start: 200704, end: 200706
  2. YAZ [Suspect]
     Indication: PREMENSTRUAL SYNDROME
  3. NAPROXEN [Concomitant]
     Indication: MIGRAINE
     Dosage: UNK
     Dates: start: 2007

REACTIONS (9)
  - Cerebrovascular accident [None]
  - Deep vein thrombosis [None]
  - Injury [None]
  - Pain [None]
  - Fear of disease [None]
  - Pain [None]
  - Mental disorder [None]
  - Depression [None]
  - Anxiety [None]
